FAERS Safety Report 8482909-5 (Version None)
Quarter: 2012Q3

REPORT INFORMATION
  Report Type: 
  Country: None (occurrence: None)
  Receive Date: 20120702
  Receipt Date: 20120620
  Transmission Date: 20120928
  Serious: Yes (Other)
  Sender: FDA-Public Use
  Company Number: US-ELI_LILLY_AND_COMPANY-US201105008354

PATIENT
  Sex: Female

DRUGS (2)
  1. FORTEO [Suspect]
     Indication: OSTEOPOROSIS
     Dosage: 20 UG, QD
     Route: 065
     Dates: start: 20090219
  2. FORTEO [Suspect]
     Dosage: 20 UG, QD
     Route: 065
     Dates: start: 20090219

REACTIONS (9)
  - ARTHRITIS [None]
  - MEDICATION ERROR [None]
  - ANAEMIA [None]
  - GASTRIC HAEMORRHAGE [None]
  - DRUG DOSE OMISSION [None]
  - OSTEOPENIA [None]
  - LIVER DISORDER [None]
  - FEAR [None]
  - INTERVERTEBRAL DISC PROTRUSION [None]
